FAERS Safety Report 15925207 (Version 2)
Quarter: 2019Q2

REPORT INFORMATION
  Report Type: Spontaneous
  Country: US (occurrence: US)
  Receive Date: 20190206
  Receipt Date: 20190611
  Transmission Date: 20190711
  Serious: No
  Sender: FDA-Public Use
  Company Number: US-PFIZER INC-2019052162

PATIENT
  Age: 78 Year
  Sex: Female

DRUGS (1)
  1. IBRANCE [Suspect]
     Active Substance: PALBOCICLIB
     Indication: BREAST CANCER FEMALE
     Dosage: 125 MG, UNK

REACTIONS (8)
  - Dry skin [Unknown]
  - Tremor [Unknown]
  - Rhinorrhoea [Unknown]
  - Full blood count decreased [Unknown]
  - Lacrimation increased [Unknown]
  - Alopecia [Unknown]
  - Visual impairment [Unknown]
  - Pain [Unknown]
